FAERS Safety Report 6505674-7 (Version None)
Quarter: 2009Q4

REPORT INFORMATION
  Report Type: 
  Country: None (occurrence: None)
  Receive Date: 20091218
  Receipt Date: 20091207
  Transmission Date: 20100525
  Serious: Yes (Other)
  Sender: FDA-Public Use
  Company Number: A0834626A

PATIENT
  Sex: Female
  Weight: 106.8 kg

DRUGS (4)
  1. LAPATINIB [Suspect]
     Dosage: 1500MG PER DAY
     Route: 048
     Dates: start: 20090320, end: 20090504
  2. CISPLATIN [Suspect]
     Dosage: 100MGM2 CYCLIC
     Route: 042
     Dates: start: 20090324
  3. CARBOPLATIN [Suspect]
     Route: 042
     Dates: start: 20090414
  4. RADIOTHERAPY [Suspect]
     Route: 061
     Dates: start: 20090324, end: 20090515

REACTIONS (1)
  - LYMPHOPENIA [None]
